FAERS Safety Report 5677388-7 (Version None)
Quarter: 2008Q1

REPORT INFORMATION
  Report Type: 
  Country: None (occurrence: None)
  Receive Date: 20080324
  Receipt Date: 20080312
  Transmission Date: 20080703
  Serious: Yes (Hospitalization)
  Sender: FDA-Public Use
  Company Number: FR-PFIZER INC-2007100970

PATIENT
  Sex: Male
  Weight: 61 kg

DRUGS (6)
  1. LYRICA [Suspect]
     Indication: NEURALGIA
     Route: 048
     Dates: start: 20070714, end: 20070723
  2. EFFERALGAN CODEINE [Suspect]
     Indication: NEURALGIA
     Route: 048
     Dates: start: 20061201, end: 20070723
  3. NEURONTIN [Concomitant]
  4. LAROXYL [Concomitant]
  5. CLONAZEPAM [Concomitant]
     Route: 048
     Dates: start: 20070717, end: 20070801
  6. ZOLPIDEM TARTRATE [Concomitant]
     Route: 048
     Dates: start: 20070717, end: 20070723

REACTIONS (7)
  - ALANINE AMINOTRANSFERASE INCREASED [None]
  - ASPARTATE AMINOTRANSFERASE INCREASED [None]
  - BLOOD CREATINE PHOSPHOKINASE INCREASED [None]
  - CYTOLYTIC HEPATITIS [None]
  - GAMMA-GLUTAMYLTRANSFERASE INCREASED [None]
  - MYALGIA [None]
  - NAUSEA [None]
